FAERS Safety Report 5931076-8 (Version None)
Quarter: 2008Q4

REPORT INFORMATION
  Report Type: 
  Country: None (occurrence: None)
  Receive Date: 20081027
  Receipt Date: 20081021
  Transmission Date: 20090506
  Serious: No
  Sender: FDA-Public Use
  Company Number: CA-ASTRAZENECA-2008UW21623

PATIENT
  Age: 61 Year
  Sex: Female

DRUGS (5)
  1. ARIMIDEX [Suspect]
     Indication: NEOPLASM MALIGNANT
     Route: 048
     Dates: start: 20080720, end: 20080826
  2. DESYREL [Concomitant]
  3. EFFEXOR XR [Concomitant]
  4. PAXIL [Concomitant]
  5. RIVATRIL [Concomitant]

REACTIONS (1)
  - SUICIDAL IDEATION [None]
